FAERS Safety Report 8216844-4 (Version None)
Quarter: 2012Q1

REPORT INFORMATION
  Report Type: 
  Country: None (occurrence: None)
  Receive Date: 20120316
  Receipt Date: 20120305
  Transmission Date: 20120608
  Serious: Yes (Death)
  Sender: FDA-Public Use
  Company Number: IT-CELGENEUS-083-21880-11111593

PATIENT

DRUGS (2)
  1. REVLIMID [Suspect]
     Indication: MULTIPLE MYELOMA
     Dosage: 15 MILLIGRAM
     Route: 048
     Dates: start: 20110124, end: 20110501
  2. DEXAMETHASONE [Concomitant]
     Route: 065
     Dates: end: 20110501

REACTIONS (3)
  - ACUTE PULMONARY OEDEMA [None]
  - MULTIPLE MYELOMA [None]
  - DRUG INEFFECTIVE [None]
